FAERS Safety Report 10882047 (Version 1)
Quarter: 2015Q1

REPORT INFORMATION
  Report Type: Spontaneous
  Country: US (occurrence: None)
  Receive Date: 20150226
  Receipt Date: 20150226
  Transmission Date: 20150721
  Serious: Yes (Hospitalization)
  Sender: FDA-Public Use
  Company Number: None

PATIENT
  Age: 60 Year
  Sex: Male
  Weight: 82.55 kg

DRUGS (2)
  1. ABIRATERONE ACETATE [Suspect]
     Active Substance: ABIRATERONE ACETATE
     Dates: start: 20141222, end: 20150218
  2. PREDNISONE. [Suspect]
     Active Substance: PREDNISONE
     Dates: end: 20150218

REACTIONS (4)
  - Middle insomnia [None]
  - Hyperphagia [None]
  - Chest pain [None]
  - Sinus bradycardia [None]

NARRATIVE: CASE EVENT DATE: 20150219
